FAERS Safety Report 9528079 (Version 1)
Quarter: 2013Q3

REPORT INFORMATION
  Report Type: Report from Study
  Country: CA (occurrence: CA)
  Receive Date: 20130917
  Receipt Date: 20130917
  Transmission Date: 20140515
  Serious: Yes (Other)
  Sender: FDA-Public Use
  Company Number: CA-JNJFOC-20130903906

PATIENT
  Age: 21 Year
  Sex: Male
  Weight: 75 kg

DRUGS (5)
  1. REMICADE [Suspect]
     Indication: CROHN^S DISEASE
     Route: 042
     Dates: start: 20130909
  2. REMICADE [Suspect]
     Indication: CROHN^S DISEASE
     Route: 042
     Dates: start: 20130729
  3. PREDNISONE [Suspect]
     Indication: PRODUCT USED FOR UNKNOWN INDICATION
     Route: 048
  4. ZOPICLONE [Concomitant]
     Route: 065
  5. AMOXICILINE + CLAVULANIC ACID [Concomitant]
     Indication: FISTULA
     Route: 065

REACTIONS (4)
  - Chest pain [Not Recovered/Not Resolved]
  - Haemoptysis [Recovered/Resolved]
  - Haematochezia [Not Recovered/Not Resolved]
  - Rash erythematous [Not Recovered/Not Resolved]
